FAERS Safety Report 24989828 (Version 1)
Quarter: 2025Q1

REPORT INFORMATION
  Report Type: Spontaneous
  Country: FR (occurrence: FR)
  Receive Date: 20250220
  Receipt Date: 20250220
  Transmission Date: 20250408
  Serious: Yes (Hospitalization, Disabling)
  Sender: RANBAXY
  Company Number: FR-SUN PHARMACEUTICAL INDUSTRIES LTD-2025RR-495386

PATIENT
  Sex: Female
  Weight: 2.52 kg

DRUGS (4)
  1. SERTRALINE [Suspect]
     Active Substance: SERTRALINE HYDROCHLORIDE
     Indication: Depression
     Dosage: 50 MILLIGRAM, DAILY
     Route: 064
     Dates: end: 20241023
  2. BISOPROLOL [Suspect]
     Active Substance: BISOPROLOL
     Indication: Atrial fibrillation
     Route: 064
     Dates: end: 2024
  3. LAMICTAL [Suspect]
     Active Substance: LAMOTRIGINE
     Indication: Epilepsy
     Dosage: 200 MILLIGRAM, DAILY
     Route: 064
     Dates: end: 20241023
  4. PROPRANOLOL [Suspect]
     Active Substance: PROPRANOLOL HYDROCHLORIDE
     Indication: Atrial fibrillation
     Dosage: 240 MILLIGRAM, DAILY
     Route: 064
     Dates: start: 2024, end: 20241023

REACTIONS (6)
  - Foetal growth restriction [Recovered/Resolved]
  - Bradycardia foetal [Recovered/Resolved]
  - Neonatal respiratory distress [Recovered/Resolved]
  - Neonatal behavioural syndrome [Recovered/Resolved]
  - Microencephaly [Not Recovered/Not Resolved]
  - Maternal exposure during pregnancy [Not Recovered/Not Resolved]

NARRATIVE: CASE EVENT DATE: 20240101
